FAERS Safety Report 13141989 (Version 1)
Quarter: 2017Q1

REPORT INFORMATION
  Report Type: Spontaneous
  Country: US (occurrence: US)
  Receive Date: 20170124
  Receipt Date: 20170124
  Transmission Date: 20170428
  Serious: Yes (Hospitalization)
  Sender: FDA-Public Use
  Company Number: US-BAYER-2017-009014

PATIENT
  Age: 62 Year
  Sex: Male
  Weight: 97.51 kg

DRUGS (10)
  1. DABIGATRAN [Concomitant]
     Active Substance: DABIGATRAN
  2. TORSEMIDE. [Concomitant]
     Active Substance: TORSEMIDE
     Dosage: 100 MG, BID
  3. AMIODARONE [Concomitant]
     Active Substance: AMIODARONE
     Dosage: 200 MG, QD
  4. GLIPIZIDE. [Concomitant]
     Active Substance: GLIPIZIDE
  5. OXYCODONE [Concomitant]
     Active Substance: OXYCODONE
     Dosage: 5 MG, UNK
  6. METOPROLOL SUCCINATE. [Concomitant]
     Active Substance: METOPROLOL SUCCINATE
     Dosage: 37.5 MG, BID
  7. APIXABAN [Concomitant]
     Active Substance: APIXABAN
  8. METOLAZONE. [Concomitant]
     Active Substance: METOLAZONE
     Dosage: 5 MG, QD, PRN
  9. BAYER LOW DOSE [Suspect]
     Active Substance: ASPIRIN
     Dosage: 1 DF, QD
  10. SPIRONOLACTONE. [Concomitant]
     Active Substance: SPIRONOLACTONE
     Dosage: 25 MG, QD

REACTIONS (7)
  - Cardiac failure [Unknown]
  - Dizziness [Unknown]
  - Dyspnoea [Unknown]
  - Weight increased [Unknown]
  - Dyspnoea [None]
  - Hypotension [Unknown]
  - Dyspnoea [None]

NARRATIVE: CASE EVENT DATE: 201603
